FAERS Safety Report 5978791-8 (Version None)
Quarter: 2008Q4

REPORT INFORMATION
  Report Type: 
  Country: None (occurrence: None)
  Receive Date: 20081204
  Receipt Date: 20081121
  Transmission Date: 20090506
  Serious: Yes (Hospitalization, Other)
  Sender: FDA-Public Use
  Company Number: PHHY2008JP28223

PATIENT
  Age: 55 Year
  Sex: Female
  Weight: 45 kg

DRUGS (12)
  1. ZOMETA [Suspect]
     Indication: HYPERCALCAEMIA OF MALIGNANCY
     Dosage: UNK
     Route: 042
     Dates: start: 20080508, end: 20080508
  2. ADRIACIN [Suspect]
     Dosage: UNK
     Route: 041
     Dates: start: 20080509, end: 20080511
  3. ONCOVIN [Suspect]
     Dosage: UNK
     Route: 041
     Dates: start: 20080509, end: 20080509
  4. PREDNISOLONE [Suspect]
     Dosage: UNK
     Route: 048
     Dates: start: 20080509, end: 20080518
  5. KYTRIL [Concomitant]
     Dosage: UNK
     Route: 041
     Dates: start: 20080509, end: 20080511
  6. FAMOTIDINE [Concomitant]
     Dosage: UNK
     Route: 048
     Dates: start: 20080509
  7. DOMPERIDONE [Concomitant]
     Dosage: UNK
     Route: 048
     Dates: start: 20080509, end: 20080518
  8. NEUFAN [Concomitant]
     Dosage: 200 MG
     Route: 048
     Dates: start: 20080509, end: 20080514
  9. NOVAMIN [Concomitant]
     Dosage: 15 MG
     Route: 048
     Dates: start: 20080509, end: 20080518
  10. MUCOSTA [Concomitant]
     Dosage: 300 MG
     Route: 048
     Dates: start: 20080509, end: 20080518
  11. POTASSIUM CITRATE W/SODIUM CITRATE [Concomitant]
     Dosage: 4 DF
     Route: 048
     Dates: start: 20080509, end: 20080514
  12. URINORM [Concomitant]
     Dosage: 100 MG
     Route: 048
     Dates: start: 20080509, end: 20080514

REACTIONS (19)
  - ANAEMIA [None]
  - BLOOD CREATINE PHOSPHOKINASE INCREASED [None]
  - BLOOD CREATININE INCREASED [None]
  - BLOOD POTASSIUM ABNORMAL [None]
  - BLOOD UREA INCREASED [None]
  - BLOOD URIC ACID INCREASED [None]
  - C-REACTIVE PROTEIN INCREASED [None]
  - DIALYSIS [None]
  - DYSPNOEA [None]
  - HYPOCALCAEMIA [None]
  - LIVER DISORDER [None]
  - LUNG DISORDER [None]
  - PLATELET COUNT DECREASED [None]
  - PROTEIN TOTAL DECREASED [None]
  - PULMONARY CONGESTION [None]
  - RENAL FAILURE ACUTE [None]
  - RESPIRATORY FAILURE [None]
  - TUMOUR LYSIS SYNDROME [None]
  - WHITE BLOOD CELL COUNT DECREASED [None]
